FAERS Safety Report 7583928-3 (Version None)
Quarter: 2011Q2

REPORT INFORMATION
  Report Type: 
  Country: None (occurrence: None)
  Receive Date: 20110630
  Receipt Date: 20110616
  Transmission Date: 20111010
  Serious: Yes (Other)
  Sender: FDA-Public Use
  Company Number: US-BAYER-2011-006408

PATIENT
  Age: 31 Year
  Sex: Female
  Weight: 96.145 kg

DRUGS (4)
  1. LEVONORGESTREL [Concomitant]
     Indication: POST COITAL CONTRACEPTION
     Dosage: 0.75 MG, UNK
  2. CONCEPTROL [Concomitant]
     Dosage: 4 %, UNK
     Dates: start: 20110331
  3. MIRENA [Suspect]
     Indication: CONTRACEPTION
     Dosage: 20 MCG/24HR, CONT
     Route: 015
     Dates: start: 20071220, end: 20110331
  4. LEVETIRACETAM [Concomitant]
     Dosage: 250 MG, BID
     Route: 048
     Dates: start: 20110118

REACTIONS (8)
  - GRAND MAL CONVULSION [None]
  - CONVULSION [None]
  - HAIR DISORDER [None]
  - VAGINAL DISORDER [None]
  - SOMNOLENCE [None]
  - ROAD TRAFFIC ACCIDENT [None]
  - HIRSUTISM [None]
  - ACNE [None]
